FAERS Safety Report 5561194-8 (Version None)
Quarter: 2007Q4

REPORT INFORMATION
  Report Type: 
  Country: None (occurrence: None)
  Receive Date: 20071215
  Receipt Date: 20071026
  Transmission Date: 20080405
  Serious: No
  Sender: FDA-Public Use
  Company Number: US-AMGEN-KDL249944

PATIENT
  Sex: Female

DRUGS (1)
  1. ENBREL [Suspect]
     Indication: PSORIATIC ARTHROPATHY
     Route: 058
     Dates: start: 20041221

REACTIONS (6)
  - ARTHRALGIA [None]
  - COUGH [None]
  - EAR CONGESTION [None]
  - NASAL CONGESTION [None]
  - ORAL HERPES [None]
  - PARANASAL SINUS HYPERSECRETION [None]
